FAERS Safety Report 21025756 (Version 1)
Quarter: 2022Q2

REPORT INFORMATION
  Report Type: Other
  Country: DE (occurrence: None)
  Receive Date: 20220630
  Receipt Date: 20220630
  Transmission Date: 20220721
  Serious: Yes (Other)
  Sender: FDA-Public Use
  Company Number: DE-ROCHE-3122777

PATIENT
  Age: 56 Year
  Sex: Female
  Weight: 73 kg

DRUGS (2)
  1. PERJETA [Suspect]
     Active Substance: PERTUZUMAB
     Indication: Breast cancer
     Dosage: LAST DOSE PRIOR EVENT (MG)420
     Route: 042
     Dates: start: 20220125, end: 20220225
  2. TRASTUZUMAB [Suspect]
     Active Substance: TRASTUZUMAB
     Indication: Breast cancer
     Dosage: LAST DOSE PRIOR EVENT (MG) 430
     Route: 041
     Dates: start: 20220125, end: 20220225

REACTIONS (4)
  - Dyspnoea [Recovered/Resolved]
  - Ventricular hypokinesia [Recovered/Resolved]
  - Hypokinesia [Recovered/Resolved]
  - Cardiac dysfunction [Recovered/Resolved]

NARRATIVE: CASE EVENT DATE: 20220221
